FAERS Safety Report 6961721-X (Version None)
Quarter: 2010Q3

REPORT INFORMATION
  Report Type: 
  Country: None (occurrence: None)
  Receive Date: 20100901
  Receipt Date: 20100810
  Transmission Date: 20110219
  Serious: Yes (Other)
  Sender: FDA-Public Use
  Company Number: PHFR2010GB02556

PATIENT
  Sex: Male

DRUGS (1)
  1. DIOVAN [Suspect]
     Dosage: 80 MG
     Route: 048

REACTIONS (5)
  - HAEMORRHAGE [None]
  - OROPHARYNGEAL BLISTERING [None]
  - PAIN [None]
  - SKIN EXFOLIATION [None]
  - THERMAL BURN [None]
